FAERS Safety Report 16631585 (Version 1)
Quarter: 2019Q3

REPORT INFORMATION
  Report Type: Spontaneous
  Country: US (occurrence: US)
  Receive Date: 20190725
  Receipt Date: 20190725
  Transmission Date: 20191004
  Serious: Yes (Death)
  Sender: FDA-Public Use
  Company Number: US-PFIZER INC-2019045166

PATIENT
  Age: 74 Year
  Sex: Male

DRUGS (2)
  1. VFEND [Suspect]
     Active Substance: VORICONAZOLE
     Dosage: 300 MG, 2X/DAY, (1.5 TABS (300 MG) TWO TIMES A DAY)
  2. VFEND [Suspect]
     Active Substance: VORICONAZOLE
     Dosage: 1.5 DF, 2X/DAY, (TAKE 1.5 TABS (300 MG) BID (TWO TIMES A DAY))

REACTIONS (1)
  - Death [Fatal]
